FAERS Safety Report 12459023 (Version 3)
Quarter: 2023Q1

REPORT INFORMATION
  Report Type: Spontaneous
  Country: FR (occurrence: FR)
  Receive Date: 20160613
  Receipt Date: 20230317
  Transmission Date: 20230417
  Serious: Yes (Death, Hospitalization, Other)
  Sender: FDA-Public Use
  Company Number: FR-AUROBINDO-AUR-APL-2016-07515

PATIENT
  Age: 16 Year
  Sex: Female
  Weight: 70 kg

DRUGS (4)
  1. IBUPROFEN [Suspect]
     Active Substance: IBUPROFEN
     Indication: Product used for unknown indication
     Dosage: UNK, 1 STRIP OF 400 MG
     Route: 048
     Dates: start: 20130426, end: 20130426
  2. FENOFIBRATE [Suspect]
     Active Substance: FENOFIBRATE
     Indication: Product used for unknown indication
     Dosage: UNK, ONE STRIP
     Route: 048
     Dates: start: 20130426, end: 20130426
  3. PREDNISONE [Suspect]
     Active Substance: PREDNISONE
     Indication: Product used for unknown indication
     Dosage: 20 MILLIGRAM, 1 TOTAL (20 TABLETS OF 20 MG PREDNISONE)
     Route: 048
     Dates: start: 20130426, end: 20130426
  4. COLCHICINE [Suspect]
     Active Substance: COLCHICINE
     Indication: Pyrexia
     Dosage: 50-60 TABLETS OF 1MG
     Route: 048
     Dates: start: 20130426, end: 20130426

REACTIONS (24)
  - Cardiac failure [Fatal]
  - Disseminated intravascular coagulation [Fatal]
  - Multiple organ dysfunction syndrome [Fatal]
  - Cardiogenic shock [Fatal]
  - Acute kidney injury [Fatal]
  - Leukocytosis [Fatal]
  - Suicide attempt [Fatal]
  - Ventricular dysfunction [Fatal]
  - Haemorrhage [Fatal]
  - Anuria [Fatal]
  - Coagulopathy [Fatal]
  - Toxicity to various agents [Fatal]
  - Somnolence [Fatal]
  - Respiratory distress [Fatal]
  - Metabolic acidosis [Fatal]
  - Renal impairment [Unknown]
  - Depressed level of consciousness [Unknown]
  - Hepatic cytolysis [Unknown]
  - Hypertension [Unknown]
  - Thrombocytopenia [Unknown]
  - Vomiting [Unknown]
  - Intentional overdose [Unknown]
  - Cardiac output decreased [Unknown]
  - Hypotension [Unknown]
